FAERS Safety Report 8882661 (Version 1)
Quarter: 2012Q4

REPORT INFORMATION
  Report Type: 
  Country: CA (occurrence: CA)
  Receive Date: 20121104
  Receipt Date: 20121104
  Transmission Date: 20130627
  Serious: Yes (Other)
  Sender: FDA-Public Use
  Company Number: PHHY2008CA044554

PATIENT

DRUGS (1)
  1. SANDOSTATIN LAR [Suspect]
     Dates: start: 20070330

REACTIONS (13)
  - Blood pressure diastolic decreased [Unknown]
  - Disturbance in attention [Unknown]
  - Myalgia [Unknown]
  - Pain in extremity [Unknown]
  - Arthralgia [Unknown]
  - Vision blurred [Unknown]
  - Malaise [Unknown]
  - Heart rate decreased [Unknown]
  - Dizziness [Unknown]
  - Asthenia [Unknown]
  - Injection site pain [Recovered/Resolved]
  - Abdominal distension [Unknown]
  - Abdominal discomfort [Unknown]
